FAERS Safety Report 13684079 (Version 1)
Quarter: 2017Q2

REPORT INFORMATION
  Report Type: Spontaneous
  Country: FR (occurrence: FR)
  Receive Date: 20170623
  Receipt Date: 20170623
  Transmission Date: 20170830
  Serious: Yes (Hospitalization)
  Sender: FDA-Public Use
  Company Number: FR-JNJFOC-20170616984

PATIENT
  Age: 87 Year
  Sex: Female
  Weight: 52 kg

DRUGS (8)
  1. EBIXA [Concomitant]
     Active Substance: MEMANTINE HYDROCHLORIDE
     Dosage: IN THE MORNING
     Route: 048
  2. HALDOL [Suspect]
     Active Substance: HALOPERIDOL
     Indication: ANXIETY
     Route: 048
     Dates: end: 20160125
  3. SERESTA [Concomitant]
     Active Substance: OXAZEPAM
     Route: 065
  4. PANTOPRAZOLE [Concomitant]
     Active Substance: PANTOPRAZOLE
     Dosage: IN THE EVENING
     Route: 048
     Dates: end: 20160125
  5. BISOPROLOL [Concomitant]
     Active Substance: BISOPROLOL
     Dosage: IN THE MORNING
     Route: 048
  6. COOLMETEC [Concomitant]
     Active Substance: HYDROCHLOROTHIAZIDE\OLMESARTAN MEDOXOMIL
     Dosage: DOSE: 40 MG/25 MG, IN THE MORNING
     Route: 048
     Dates: end: 20170125
  7. IMOVANE [Concomitant]
     Active Substance: ZOPICLONE
     Route: 048
  8. MIANSERIN [Concomitant]
     Active Substance: MIANSERIN
     Route: 048

REACTIONS (4)
  - Product use in unapproved indication [Unknown]
  - Pneumonia aspiration [Recovered/Resolved]
  - Off label use [Unknown]
  - Urinary retention [Recovered/Resolved]

NARRATIVE: CASE EVENT DATE: 20160121
